FAERS Safety Report 8433194-1 (Version None)
Quarter: 2012Q2

REPORT INFORMATION
  Report Type: 
  Country: None (occurrence: None)
  Receive Date: 20120613
  Receipt Date: 20120606
  Transmission Date: 20120825
  Serious: Yes (Other)
  Sender: FDA-Public Use
  Company Number: CH-GLAXOSMITHKLINE-B0800001A

PATIENT
  Age: 80 Year
  Sex: Male
  Weight: 81 kg

DRUGS (4)
  1. PROMACTA [Suspect]
     Indication: IDIOPATHIC THROMBOCYTOPENIC PURPURA
     Dosage: 25MG PER DAY
     Route: 048
     Dates: start: 20120119, end: 20120323
  2. MARCUMAR [Concomitant]
     Dosage: 1MG PER DAY
     Route: 048
     Dates: start: 20120206
  3. NEBIVOLOL HCL [Concomitant]
     Route: 048
  4. ASPIRIN [Concomitant]
     Route: 048

REACTIONS (5)
  - VENOUS THROMBOSIS [None]
  - DERMATITIS EXFOLIATIVE [None]
  - PRURITUS [None]
  - RASH ERYTHEMATOUS [None]
  - DRUG RASH WITH EOSINOPHILIA AND SYSTEMIC SYMPTOMS [None]
